FAERS Safety Report 11575022 (Version 1)
Quarter: 2015Q3

REPORT INFORMATION
  Report Type: Spontaneous
  Country: US (occurrence: None)
  Receive Date: 20150929
  Receipt Date: 20150929
  Transmission Date: 20151125
  Serious: Yes (Hospitalization)
  Sender: FDA-Public Use
  Company Number: None

PATIENT
  Age: 79 Year
  Sex: Male
  Weight: 79 kg

DRUGS (3)
  1. HURRICAINE TOPICAL ANESTHETIC SPRAY [Suspect]
     Active Substance: BENZOCAINE
     Indication: ECHOCARDIOGRAM
     Dosage: 1/2 SECOND SPRAY ONE DOSE TOPICAL
     Route: 061
     Dates: start: 20150925, end: 20150925
  2. MIDAZOLAM [Concomitant]
     Active Substance: MIDAZOLAM\MIDAZOLAM HYDROCHLORIDE
  3. FENTANYL. [Concomitant]
     Active Substance: FENTANYL

REACTIONS (1)
  - Methaemoglobinaemia [None]

NARRATIVE: CASE EVENT DATE: 20150925
